FAERS Safety Report 7725546-X (Version None)
Quarter: 2011Q3

REPORT INFORMATION
  Report Type: 
  Country: None (occurrence: None)
  Receive Date: 20110902
  Receipt Date: 20110830
  Transmission Date: 20111222
  Serious: Yes (Other)
  Sender: FDA-Public Use
  Company Number: US-AMGEN-USASP2011044634

PATIENT
  Age: 82 Year
  Sex: Female

DRUGS (1)
  1. NPLATE [Suspect]
     Indication: MYELODYSPLASTIC SYNDROME
     Dosage: 70 MUG, UNK
     Dates: start: 20110725, end: 20110728

REACTIONS (1)
  - ACUTE MYELOID LEUKAEMIA [None]
